FAERS Safety Report 22065676 (Version 2)
Quarter: 2023Q1

REPORT INFORMATION
  Report Type: Spontaneous
  Country: CA (occurrence: CA)
  Receive Date: 20230306
  Receipt Date: 20230323
  Transmission Date: 20230418
  Serious: Yes (Other)
  Sender: FDA-Public Use
  Company Number: CA-PFIZER INC-202300092122

PATIENT
  Age: 34 Year
  Sex: Female
  Weight: 72.6 kg

DRUGS (2)
  1. METHOTREXATE SODIUM [Suspect]
     Active Substance: METHOTREXATE SODIUM
     Dosage: 1 DF, DOSAGE INFO: UNKNOWN
     Route: 048
     Dates: start: 202112, end: 202207
  2. RABEPRAZOLE [Concomitant]
     Active Substance: RABEPRAZOLE
     Dosage: UNK, AS NEEDED
     Route: 065

REACTIONS (11)
  - Uveitis [Unknown]
  - Haematochezia [Unknown]
  - Condition aggravated [Unknown]
  - Mucous stools [Unknown]
  - Nausea [Unknown]
  - Vomiting [Unknown]
  - Dyspnoea [Unknown]
  - Asthenia [Unknown]
  - Arthralgia [Unknown]
  - Aphthous ulcer [Unknown]
  - Back pain [Not Recovered/Not Resolved]
